FAERS Safety Report 16094531 (Version 1)
Quarter: 2019Q2

REPORT INFORMATION
  Report Type: Spontaneous
  Country: US (occurrence: US)
  Receive Date: 20190319
  Receipt Date: 20190319
  Transmission Date: 20190711
  Serious: No
  Sender: FDA-Public Use
  Company Number: None

PATIENT
  Age: 63 Year
  Sex: Male
  Weight: 96.75 kg

DRUGS (9)
  1. GINGER POWDER [Concomitant]
  2. HYDROXYCHLOROQUINE [Suspect]
     Active Substance: HYDROXYCHLOROQUINE
     Indication: RHEUMATOID ARTHRITIS
     Dosage: ?          QUANTITY:2 TABLET(S);?
     Route: 048
     Dates: start: 20190222, end: 20190318
  3. LISINOPRIL. [Concomitant]
     Active Substance: LISINOPRIL
  4. ASPIRIN. [Concomitant]
     Active Substance: ASPIRIN
  5. TURMERIC [Concomitant]
     Active Substance: HERBALS\TURMERIC
  6. ALEVE [Concomitant]
     Active Substance: NAPROXEN SODIUM
  7. VITAMN D3 [Concomitant]
  8. ATENOLOL. [Concomitant]
     Active Substance: ATENOLOL
  9. APPLE CIDER VINEGAR [Concomitant]
     Active Substance: APPLE CIDER VINEGAR

REACTIONS (7)
  - Headache [None]
  - Myalgia [None]
  - Drug hypersensitivity [None]
  - Fatigue [None]
  - Dizziness [None]
  - Peripheral coldness [None]
  - Diarrhoea [None]

NARRATIVE: CASE EVENT DATE: 20190313
